FAERS Safety Report 5005005-8 (Version None)
Quarter: 2006Q2

REPORT INFORMATION
  Report Type: 
  Country: None (occurrence: None)
  Receive Date: 20060327
  Receipt Date: 20050608
  Transmission Date: 20061013
  Serious: Yes (Other)
  Sender: FDA-Public Use
  Company Number: 18900

PATIENT
  Age: 16 Month
  Sex: Male
  Weight: 12 kg

DRUGS (1)
  1. KETAMINE HCL [Suspect]
     Indication: LACERATION
     Dosage: 698204
     Dates: start: 20050608

REACTIONS (1)
  - DRUG INEFFECTIVE [None]
